FAERS Safety Report 5554826-1 (Version None)
Quarter: 2007Q4

REPORT INFORMATION
  Report Type: 
  Country: None (occurrence: None)
  Receive Date: 20071213
  Receipt Date: 20071130
  Transmission Date: 20080405
  Serious: Yes (Hospitalization, Other)
  Sender: FDA-Public Use
  Company Number: US-AMGEN-STX254920

PATIENT
  Sex: Female

DRUGS (1)
  1. ENBREL [Suspect]
     Indication: PSORIATIC ARTHROPATHY
     Route: 058
     Dates: start: 20050401

REACTIONS (7)
  - COMPUTERISED TOMOGRAM THORAX ABNORMAL [None]
  - CONSTIPATION [None]
  - HEADACHE [None]
  - LUNG INFECTION [None]
  - LUNG NEOPLASM MALIGNANT [None]
  - RENAL CELL CARCINOMA STAGE UNSPECIFIED [None]
  - TRANSIENT ISCHAEMIC ATTACK [None]
